FAERS Safety Report 4457360-5 (Version None)
Quarter: 2004Q3

REPORT INFORMATION
  Report Type: 
  Country: None (occurrence: None)
  Receive Date: 20040921
  Receipt Date: 20040908
  Transmission Date: 20050211
  Serious: Yes (Hospitalization)
  Sender: FDA-Public Use
  Company Number: B0344866A

PATIENT
  Age: 69 Year
  Sex: Female
  Weight: 217.8 kg

DRUGS (19)
  1. CEFTIN (CEFUROXETIME AXETIL) [Suspect]
     Dosage: 750 MG /THREE TIMES PER DAY/INTRA
     Dates: start: 20040805, end: 20040806
  2. EFFERALGAN CODEINE TABLET-EFFERVESCENT (EFFERALGAN CODEINE) [Suspect]
     Dosage: 2 UNIT/THREE TIMES PER DAY/ORAL
     Route: 048
     Dates: start: 20040806, end: 20040808
  3. ENOXAPARIN SODIUM [Concomitant]
  4. THIOPENTONE SODIUM [Concomitant]
  5. SUFENTANIL [Concomitant]
  6. SUCCINYLCHOLINE CHLORIDE [Concomitant]
  7. VENOFER (VENOFER) [Suspect]
     Dosage: 2 UNIT ALTERNATE DAYS INTRAVENOUS
     Route: 042
     Dates: start: 20040805, end: 20040807
  8. TRAMADOL HCL [Suspect]
     Dosage: 150 MG TWICE PER DAY ORAL
     Route: 048
     Dates: start: 20040806, end: 20040808
  9. MIDAZOLAM HYDROCHLORIDE [Concomitant]
  10. KETAMINE HCL [Concomitant]
  11. ROPIVACAINE HCL [Concomitant]
  12. CLONIDINE HCL [Concomitant]
  13. MORPHINE [Concomitant]
  14. KETOPROFEN [Concomitant]
  15. NEFOPAM HYDROCHLORIDE [Concomitant]
  16. TRAMADOL HYDROCHLORIDE [Concomitant]
  17. ISRADIPINE [Concomitant]
  18. COAPROVEL [Concomitant]
  19. CLONAZEPAM [Concomitant]

REACTIONS (5)
  - AGITATION [None]
  - ANXIETY [None]
  - CRYING [None]
  - DELIRIUM [None]
  - HALLUCINATION [None]
